FAERS Safety Report 16744632 (Version 1)
Quarter: 2019Q3

REPORT INFORMATION
  Report Type: Spontaneous
  Country: GB (occurrence: GB)
  Receive Date: 20190827
  Receipt Date: 20190827
  Transmission Date: 20191005
  Serious: Yes (Hospitalization, Other)
  Sender: FDA-Public Use
  Company Number: GB-MYLANLABS-2019M1078568

PATIENT
  Age: 56 Year
  Sex: Female

DRUGS (14)
  1. KISQALI [Suspect]
     Active Substance: RIBOCICLIB
     Dosage: 600 MG, QD
     Route: 065
     Dates: start: 20171228, end: 20180122
  2. ZOLADEX [Suspect]
     Active Substance: GOSERELIN ACETATE
     Indication: BREAST CANCER
     Dosage: UNK
     Route: 065
  3. LETROZOLE MYLAN [Suspect]
     Active Substance: LETROZOLE
     Dosage: UNK
     Route: 065
     Dates: start: 20180727
  4. KISQALI [Suspect]
     Active Substance: RIBOCICLIB
     Indication: BREAST CANCER
     Dosage: 600 MG, QD
     Route: 065
     Dates: start: 20180206, end: 20180307
  5. KISQALI [Suspect]
     Active Substance: RIBOCICLIB
     Dosage: 400 MG, QD (ON HOLD FOR 7 DAYS IN AUG 2018)
  6. MIRENA [Concomitant]
     Active Substance: LEVONORGESTREL
     Indication: PRODUCT USED FOR UNKNOWN INDICATION
     Dosage: COIL
     Route: 065
  7. LETROZOLE MYLAN [Suspect]
     Active Substance: LETROZOLE
     Indication: BREAST CANCER
     Dosage: ON HOLD FOR 7 DAYS IN AUG 2018
     Route: 065
  8. LETROZOLE MYLAN [Suspect]
     Active Substance: LETROZOLE
     Dosage: UNK
     Route: 065
     Dates: start: 20171228
  9. LETROZOLE MYLAN [Suspect]
     Active Substance: LETROZOLE
     Dosage: UNK
     Route: 065
     Dates: start: 20180206
  10. KISQALI [Suspect]
     Active Substance: RIBOCICLIB
     Dosage: 400 MILLIGRAM, QD
     Dates: start: 20180419
  11. KISQALI [Suspect]
     Active Substance: RIBOCICLIB
     Dosage: 400 MILLIGRAM, QD
     Dates: start: 20180727
  12. KISQALI [Suspect]
     Active Substance: RIBOCICLIB
     Dosage: 600 MG, QD
     Route: 065
     Dates: start: 20180314
  13. LETROZOLE MYLAN [Suspect]
     Active Substance: LETROZOLE
     Dosage: UNK
     Route: 065
     Dates: start: 20180314
  14. LETROZOLE MYLAN [Suspect]
     Active Substance: LETROZOLE
     Dosage: UNK
     Route: 065
     Dates: start: 20180419

REACTIONS (29)
  - Metastases to liver [Unknown]
  - Decreased appetite [Recovering/Resolving]
  - Eosinophil count decreased [Unknown]
  - Blood potassium decreased [Unknown]
  - Lower respiratory tract infection [Unknown]
  - Spinal fracture [Unknown]
  - Haemoglobin decreased [Unknown]
  - Nausea [Recovering/Resolving]
  - Chest pain [Recovering/Resolving]
  - Platelet count increased [Unknown]
  - Skin infection [Recovered/Resolved]
  - Neutropenia [Unknown]
  - Urinary tract infection [Unknown]
  - General physical health deterioration [Unknown]
  - Mean cell volume increased [Unknown]
  - Blood sodium decreased [Recovering/Resolving]
  - Diarrhoea [Unknown]
  - Constipation [Recovering/Resolving]
  - Red blood cell count decreased [Unknown]
  - Hypocalcaemia [Unknown]
  - Malignant neoplasm progression [Unknown]
  - White blood cell count decreased [Unknown]
  - Liver function test abnormal [Unknown]
  - Lethargy [Recovering/Resolving]
  - Malaise [Recovering/Resolving]
  - Oral pain [Unknown]
  - Metastases to bone [Unknown]
  - Hypercalcaemia [Unknown]
  - Vomiting [Recovering/Resolving]

NARRATIVE: CASE EVENT DATE: 20180118
